FAERS Safety Report 8407453 (Version 3)
Quarter: 2013Q2

REPORT INFORMATION
  Report Type: Spontaneous
  Country: PL (occurrence: PL)
  Receive Date: 20120215
  Receipt Date: 20130503
  Transmission Date: 20140414
  Serious: Yes (Hospitalization, Other)
  Sender: FDA-Public Use
  Company Number: PHHY2012PL010337

PATIENT
  Age: 28 Year
  Sex: Male

DRUGS (2)
  1. AMOXICILLIN [Suspect]
     Indication: PHARYNGITIS
     Dosage: 500 MG, TID
     Route: 048
  2. PARACETAMOL [Suspect]
     Indication: PHARYNGITIS

REACTIONS (7)
  - Liver injury [Recovered/Resolved]
  - Herpes simplex [Recovered/Resolved]
  - Pyrexia [Recovered/Resolved]
  - Nausea [Recovered/Resolved]
  - Rash vesicular [Recovered/Resolved]
  - Splenomegaly [Recovered/Resolved]
  - Hepatomegaly [Recovered/Resolved]
